FAERS Safety Report 12720553 (Version 3)
Quarter: 2017Q3

REPORT INFORMATION
  Report Type: Spontaneous
  Country: GB (occurrence: GB)
  Receive Date: 20160907
  Receipt Date: 20170727
  Transmission Date: 20171127
  Serious: Yes (Life-Threatening, Hospitalization)
  Sender: FDA-Public Use
  Company Number: GB-B.I. PHARMACEUTICALS,INC./RIDGEFIELD-2016-BI-58132UK

PATIENT
  Age: 71 Year
  Sex: Female
  Weight: 44 kg

DRUGS (3)
  1. ASASANTIN RETARD [Suspect]
     Active Substance: ASPIRIN\DIPYRIDAMOLE
     Indication: LACUNAR INFARCTION
     Dosage: DIPYRIDAMOLE 200 MG AND ASPIRIN 25 MG:  MORNING AND EVENING.
     Route: 048
     Dates: start: 201111, end: 20150925
  2. ASASANTIN RETARD [Suspect]
     Active Substance: ASPIRIN\DIPYRIDAMOLE
     Indication: LACUNAR INFARCTION
     Dosage: DIPYRIDAMOLE 200 MG AND ASPIRIN 25 MG:  MORNING AND EVENING., DOSE-32
     Route: 048
     Dates: start: 200412, end: 201105
  3. CRESTOR [Concomitant]
     Active Substance: ROSUVASTATIN CALCIUM
     Indication: PRODUCT USED FOR UNKNOWN INDICATION
     Dosage: SMALL DOSE.
     Route: 065

REACTIONS (4)
  - Hemianopia homonymous [Unknown]
  - Medication error [Unknown]
  - Cerebral haemorrhage [Not Recovered/Not Resolved]
  - Cerebral haematoma [Unknown]

NARRATIVE: CASE EVENT DATE: 20150925
